FAERS Safety Report 23792944 (Version 1)
Quarter: 2024Q2

REPORT INFORMATION
  Report Type: Spontaneous
  Country: CO (occurrence: CO)
  Receive Date: 20240429
  Receipt Date: 20240429
  Transmission Date: 20240716
  Serious: Yes (Other)
  Sender: FDA-Public Use
  Company Number: CO-GILEAD-2024-0670137

PATIENT
  Sex: Male

DRUGS (1)
  1. ODEFSEY [Suspect]
     Active Substance: EMTRICITABINE\RILPIVIRINE HYDROCHLORIDE\TENOFOVIR ALAFENAMIDE FUMARATE
     Indication: Product used for unknown indication
     Dosage: UNK
     Route: 065

REACTIONS (6)
  - Vasculitis [Unknown]
  - Drug reaction with eosinophilia and systemic symptoms [Unknown]
  - Lymphadenopathy [Unknown]
  - Asthenia [Unknown]
  - Hyperhidrosis [Unknown]
  - Bone marrow eosinophilic leukocyte count increased [Unknown]
